FAERS Safety Report 24240726 (Version 1)
Quarter: 2024Q3

REPORT INFORMATION
  Report Type: Spontaneous
  Country: US (occurrence: US)
  Receive Date: 20240823
  Receipt Date: 20240823
  Transmission Date: 20241016
  Serious: Yes (Other)
  Sender: APOTEX
  Company Number: US-APOTEX-2024AP009452

PATIENT
  Age: 91 Year
  Sex: Male

DRUGS (3)
  1. GEMCITABINE [Suspect]
     Active Substance: GEMCITABINE
     Indication: Pancreatic carcinoma metastatic
     Dosage: UNK
     Route: 065
  2. GEMCITABINE [Suspect]
     Active Substance: GEMCITABINE
     Indication: Tongue neoplasm
  3. GEMCITABINE [Suspect]
     Active Substance: GEMCITABINE
     Indication: Metastasis

REACTIONS (3)
  - Thrombocytopenia [Unknown]
  - Lip swelling [Recovering/Resolving]
  - Mucosal inflammation [Recovering/Resolving]
